FAERS Safety Report 9515679 (Version 1)
Quarter: 2013Q3

REPORT INFORMATION
  Report Type: Spontaneous
  Country: DE (occurrence: None)
  Receive Date: 20130909
  Receipt Date: 20130909
  Transmission Date: 20140515
  Serious: Yes (Other)
  Sender: FDA-Public Use
  Company Number: GER/GER/13/0034419

PATIENT
  Age: 55 Year
  Sex: Female

DRUGS (2)
  1. OMEPRAZOLE (OMEPRAZOLE) [Suspect]
     Indication: GASTROOESOPHAGEAL REFLUX DISEASE
  2. LEVOTHYROXINE SODIUM (LEVOTHYROXINE) [Concomitant]

REACTIONS (3)
  - Haematoma [None]
  - Thrombocytopenia [None]
  - Facial paresis [None]
